FAERS Safety Report 6302359-7 (Version None)
Quarter: 2009Q3

REPORT INFORMATION
  Report Type: 
  Country: None (occurrence: None)
  Receive Date: 20090810
  Receipt Date: 20090727
  Transmission Date: 20100115
  Serious: Yes (Hospitalization, Other)
  Sender: FDA-Public Use
  Company Number: PHHY2009NZ26951

PATIENT
  Sex: Male

DRUGS (6)
  1. CLOZARIL [Suspect]
     Indication: SCHIZOPHRENIA
     Dosage: UNK
     Route: 048
     Dates: start: 20010822, end: 20090702
  2. RISPERIDONE [Suspect]
     Dosage: 4 MG / DAY
     Dates: start: 20060101, end: 20090706
  3. OMEPRAZOLE [Suspect]
     Dosage: 20 MG / DAY
     Dates: start: 20060101
  4. PAROXETINE [Concomitant]
     Dosage: 20 MG / DAY
     Dates: start: 20040101
  5. ASPIRIN [Concomitant]
     Dosage: 100 MG / DAY
     Dates: start: 20040101
  6. QUINAPRIL [Concomitant]
     Dosage: 5 MG, BID
     Dates: start: 20040101

REACTIONS (4)
  - LOWER RESPIRATORY TRACT INFECTION [None]
  - NEUTROPHIL COUNT DECREASED [None]
  - PSYCHOTIC DISORDER [None]
  - WHITE BLOOD CELL COUNT DECREASED [None]
